FAERS Safety Report 19138877 (Version 2)
Quarter: 2021Q2

REPORT INFORMATION
  Report Type: Spontaneous
  Country: US (occurrence: US)
  Receive Date: 20210415
  Receipt Date: 20210419
  Transmission Date: 20210717
  Serious: No
  Sender: FDA-Public Use
  Company Number: US-ASTRAZENECA-2021A266477

PATIENT
  Sex: Male
  Weight: 83.5 kg

DRUGS (3)
  1. INVOKANA [Concomitant]
     Active Substance: CANAGLIFLOZIN
  2. LOSARTAN. [Concomitant]
     Active Substance: LOSARTAN
  3. BYDUREON BCISE [Suspect]
     Active Substance: EXENATIDE
     Indication: DIABETES MELLITUS
     Route: 065
     Dates: start: 2020

REACTIONS (4)
  - Device malfunction [Unknown]
  - Needle issue [Unknown]
  - Device leakage [Unknown]
  - Wrong technique in device usage process [Unknown]
